FAERS Safety Report 8436297-0 (Version None)
Quarter: 2012Q2

REPORT INFORMATION
  Report Type: 
  Country: None (occurrence: None)
  Receive Date: 20120607
  Receipt Date: 20120607
  Transmission Date: 20120825
  Serious: No
  Sender: FDA-Public Use
  Company Number: None

PATIENT
  Weight: 25 kg

DRUGS (1)
  1. OFIRMEV [Suspect]
     Dosage: SOLUTION INJECTION

REACTIONS (2)
  - DRUG ADMINISTRATION ERROR [None]
  - ACCIDENTAL OVERDOSE [None]
